FAERS Safety Report 4432371-4 (Version None)
Quarter: 2004Q3

REPORT INFORMATION
  Report Type: 
  Country: None (occurrence: None)
  Receive Date: 20040825
  Receipt Date: 20040726
  Transmission Date: 20050211
  Serious: Yes (Life-Threatening, Hospitalization, Disabling)
  Sender: FDA-Public Use
  Company Number: US-GLAXOSMITHKLINE-A0519805A

PATIENT
  Age: 70 Year
  Sex: Female

DRUGS (4)
  1. AVANDIA [Suspect]
     Indication: DIABETES MELLITUS NON-INSULIN-DEPENDENT
     Route: 048
     Dates: start: 20040101, end: 20040101
  2. METAGLIP [Concomitant]
     Indication: DIABETES MELLITUS NON-INSULIN-DEPENDENT
     Dosage: 2TABS TWICE PER DAY
     Route: 048
  3. BETA BLOCKER [Concomitant]
  4. LISINOPRIL [Concomitant]
     Indication: HYPERTENSION
     Dosage: 10MG UNKNOWN
     Route: 048

REACTIONS (2)
  - IDIOPATHIC THROMBOCYTOPENIC PURPURA [None]
  - PLATELET COUNT DECREASED [None]
